FAERS Safety Report 4736687-3 (Version None)
Quarter: 2005Q3

REPORT INFORMATION
  Report Type: 
  Country: None (occurrence: None)
  Receive Date: 20050804
  Receipt Date: 20050715
  Transmission Date: 20060218
  Serious: Yes (Death)
  Sender: FDA-Public Use
  Company Number: 1868

PATIENT
  Age: 40 Year
  Sex: Male

DRUGS (4)
  1. AVINZA [Suspect]
     Indication: BACK PAIN
     Dosage: 60 MG QD PO
     Route: 048
     Dates: start: 20050705, end: 20050710
  2. CLONAZEPAM [Concomitant]
  3. CYCLOBENZAPRINE HCL [Concomitant]
  4. HYDROCODONE [Concomitant]

REACTIONS (1)
  - ACCIDENTAL OVERDOSE [None]
